FAERS Safety Report 9331976 (Version 1)
Quarter: 2013Q2

REPORT INFORMATION
  Report Type: Spontaneous
  Country: US (occurrence: US)
  Receive Date: 20130605
  Receipt Date: 20130605
  Transmission Date: 20140414
  Serious: Yes (Hospitalization, Other)
  Sender: FDA-Public Use
  Company Number: US-ELI_LILLY_AND_COMPANY-US201305000190

PATIENT
  Age: 81 Year
  Sex: Female

DRUGS (24)
  1. FORTEO [Suspect]
     Indication: OSTEOPOROSIS
     Dosage: 20 UG, QD
     Route: 058
  2. ZOFRAN [Concomitant]
     Indication: NAUSEA
     Dosage: 4 MG, TID
  3. ZOFRAN [Concomitant]
     Dosage: 4 MG, PRN
  4. METFORMIN [Concomitant]
     Dosage: 500 MG, BID
     Dates: start: 20070606
  5. ASPIRIN [Concomitant]
     Dosage: 81 MG, QD
     Dates: start: 20100429
  6. COREG [Concomitant]
     Dosage: 12.5 MG, BID
     Dates: start: 20080123
  7. ARANESP [Concomitant]
     Dosage: UNK, 2/M
     Dates: start: 20100429
  8. NITROGLYCERIN [Concomitant]
     Indication: DYSPNOEA
     Dosage: UNK, PRN
     Dates: start: 20100429
  9. PREDNISONE [Concomitant]
     Dosage: 5 MG, QD
     Dates: start: 20100429
  10. LASIX [Concomitant]
     Dosage: 80 MG, QD
     Dates: start: 20100429
  11. FENTANYL [Concomitant]
     Dosage: 50 UG, UNK
     Route: 062
     Dates: start: 20100609
  12. FOLIC ACID [Concomitant]
     Dosage: 1 MG, QD
     Dates: start: 20101111
  13. RESTASIS [Concomitant]
     Dosage: UNK, BID
     Route: 047
     Dates: start: 20101209
  14. FISH OIL [Concomitant]
     Dosage: 1000 MG, QD
  15. GLIPIZIDE [Concomitant]
     Dosage: 10 MG, QD
     Dates: start: 20110316
  16. COZAAR [Concomitant]
     Dosage: 50 MG, QD
  17. DIGOXIN [Concomitant]
     Dosage: 0.125 MG, QD
     Dates: start: 20120529
  18. IMDUR [Concomitant]
     Dosage: 30 MG, QD
     Dates: start: 20120529
  19. VICODIN [Concomitant]
     Dosage: UNK, PRN
     Dates: start: 20120529
  20. AMBIEN [Concomitant]
     Dosage: 5 MG, UNK
  21. BUMEX [Concomitant]
     Dosage: 2 MG, BID
     Route: 048
  22. BENADRYL [Concomitant]
     Dosage: 50 UG, UNK
  23. FERROUS GLUCONATE [Concomitant]
     Dosage: 325 MG, QD
  24. CALCIUM CARBONATE + VITAMIN D [Concomitant]

REACTIONS (7)
  - Cardiac failure congestive [Not Recovered/Not Resolved]
  - Renal failure [Unknown]
  - Thrombosis [Recovering/Resolving]
  - Fall [Unknown]
  - Hypophagia [Unknown]
  - Abdominal pain [Unknown]
  - Asthenia [Unknown]
